FAERS Safety Report 8055250 (Version 3)
Quarter: 2013Q1

REPORT INFORMATION
  Report Type: Report from Study
  Country: BE (occurrence: BE)
  Receive Date: 20110726
  Receipt Date: 20130214
  Transmission Date: 20140127
  Serious: Yes (Life-Threatening, Hospitalization)
  Sender: FDA-Public Use
  Company Number: BE-BRISTOL-MYERS SQUIBB COMPANY-15921943

PATIENT
  Age: 53 Year
  Sex: Male
  Weight: 75.4 kg

DRUGS (17)
  1. CISPLATIN [Suspect]
     Indication: NON-SMALL CELL LUNG CANCER
     Dosage: STUDY THERAPY DISCONTINUED ON 12JUL11
     Route: 042
     Dates: start: 20110708, end: 20110708
  2. PEMETREXED DISODIUM [Suspect]
     Indication: NON-SMALL CELL LUNG CANCER
     Dosage: VIAL,STUDY THERAPY DISCONTINUED ON 12JUL11
     Route: 042
     Dates: start: 20110708, end: 20110708
  3. FOLIC ACID [Concomitant]
     Dates: start: 20110627
  4. VITAMIN B12 [Concomitant]
     Dates: start: 20110627, end: 20110627
  5. DEXAMETHASONE [Concomitant]
     Dates: start: 20110706, end: 20110709
  6. BUPRENORPHINE [Concomitant]
     Dates: start: 20110629
  7. TRAZODONE HCL [Concomitant]
     Dates: start: 2011
  8. CLORAZEPATE [Concomitant]
     Dates: start: 2011
  9. MIRTAZAPINE [Concomitant]
     Dates: start: 2007
  10. DICLOFENAC [Concomitant]
     Dates: start: 201103, end: 20110710
  11. PARACETAMOL [Concomitant]
     Dates: start: 201103
  12. APREPITANT [Concomitant]
     Dates: start: 20110708, end: 20110710
  13. TROPISETRON [Concomitant]
     Dates: start: 20110708, end: 20110708
  14. MANNITOL [Concomitant]
     Dates: start: 20110708, end: 20110708
  15. GLUTATHIONE [Concomitant]
     Dates: start: 20110708, end: 20110708
  16. FUROSEMIDE [Concomitant]
     Dates: start: 20110708, end: 20110708
  17. ENOXAPARIN [Concomitant]
     Indication: PULMONARY EMBOLISM
     Dates: start: 20110708, end: 20110711

REACTIONS (3)
  - Anaemia [Recovered/Resolved]
  - Upper gastrointestinal haemorrhage [Recovered/Resolved]
  - Hypotension [Recovered/Resolved]
